FAERS Safety Report 13759659 (Version 2)
Quarter: 2017Q3

REPORT INFORMATION
  Report Type: Spontaneous
  Country: KR (occurrence: KR)
  Receive Date: 20170717
  Receipt Date: 20170803
  Transmission Date: 20171127
  Serious: No
  Sender: FDA-Public Use
  Company Number: KR-009507513-1606KOR004935

PATIENT
  Age: 54 Year
  Sex: Female
  Weight: 49.7 kg

DRUGS (12)
  1. CISPLAN [Concomitant]
     Active Substance: CISPLATIN
     Indication: CHEMOTHERAPY
     Dosage: 99 MG ONCE, CYCLE 1 (STRENGTH 50 MG/100 ML)
     Route: 013
     Dates: start: 20150831, end: 20150831
  2. DEXAMETHASONE SODIUM PHOSPHATE. [Concomitant]
     Active Substance: DEXAMETHASONE SODIUM PHOSPHATE
     Indication: HEPATOCELLULAR CARCINOMA
     Dosage: 5 MG, ONCE
     Route: 042
     Dates: start: 20150831, end: 20150831
  3. ILDONG ARONAMIN C PLUS [Concomitant]
     Indication: PROPHYLAXIS
     Dosage: 1 TABLET, QD
     Route: 048
     Dates: start: 20140811
  4. PERDIPINE [Concomitant]
     Active Substance: NICARDIPINE HYDROCHLORIDE
     Indication: PROPHYLAXIS
     Dosage: 3 MG, ONCE
     Route: 042
     Dates: start: 20150831, end: 20150831
  5. DEXTROSE (+) POTASSIUM CHLORIDE (+) SODIUM CHLORIDE [Concomitant]
     Indication: FLUID REPLACEMENT
     Dosage: 1000 ML, ONCE (STRENGTH:10% DEXTROSE AND NA,K INJ 2 1000ML)
     Route: 042
     Dates: start: 20150831, end: 20150831
  6. ALOXI [Concomitant]
     Active Substance: PALONOSETRON HYDROCHLORIDE
     Indication: PROPHYLAXIS OF NAUSEA AND VOMITING
     Dosage: 0.25 MG, ONCE
     Route: 042
     Dates: start: 20150831, end: 20150831
  7. PROAMIN [Concomitant]
     Indication: PROPHYLAXIS
     Dosage: 200 ML, ONCE
     Route: 042
     Dates: start: 20150831, end: 20150831
  8. EMEND (FOSAPREPITANT DIMEGLUMINE) [Suspect]
     Active Substance: FOSAPREPITANT DIMEGLUMINE
     Indication: PROPHYLAXIS OF NAUSEA AND VOMITING
     Dosage: 150 MG, ONCE
     Route: 042
     Dates: start: 20150831, end: 20150831
  9. DEXTROSE (+) SODIUM CHLORIDE [Concomitant]
     Indication: FLUID REPLACEMENT
     Dosage: 1000 ML, BID
     Route: 042
     Dates: start: 20150831, end: 20150831
  10. VIREAD [Concomitant]
     Active Substance: TENOFOVIR DISOPROXIL FUMARATE
     Indication: HEPATITIS B
     Dosage: 300 MG, QD
     Route: 048
     Dates: start: 20140810
  11. URSA TABLETS [Concomitant]
     Indication: HEPATITIS B
     Dosage: 200 MG, BID
     Route: 048
     Dates: start: 20140811
  12. NEXIUM [Concomitant]
     Active Substance: ESOMEPRAZOLE MAGNESIUM
     Indication: PROPHYLAXIS
     Dosage: 40 MG, ONCE
     Route: 042
     Dates: start: 20150831, end: 20150831

REACTIONS (1)
  - Abdominal pain [Recovered/Resolved]

NARRATIVE: CASE EVENT DATE: 20150831
